FAERS Safety Report 5062510-6 (Version None)
Quarter: 2006Q3

REPORT INFORMATION
  Report Type: 
  Country: None (occurrence: None)
  Receive Date: 20060721
  Receipt Date: 20060712
  Transmission Date: 20061208
  Serious: Yes (Hospitalization)
  Sender: FDA-Public Use
  Company Number: 2006-07-0420

PATIENT
  Age: 1 Year
  Sex: Male
  Weight: 10 kg

DRUGS (2)
  1. CELESTONE [Suspect]
     Indication: LARYNGITIS
     Dosage: ORAL
     Route: 048
     Dates: start: 20060524, end: 20060525
  2. CELESTONE [Suspect]
     Indication: RHINITIS
     Dosage: ORAL
     Route: 048
     Dates: start: 20060524, end: 20060525

REACTIONS (2)
  - ARTHRITIS BACTERIAL [None]
  - ASTHENIA [None]
